FAERS Safety Report 16904558 (Version 1)
Quarter: 2019Q4

REPORT INFORMATION
  Report Type: Spontaneous
  Country: CH (occurrence: CH)
  Receive Date: 20191010
  Receipt Date: 20191010
  Transmission Date: 20200122
  Serious: Yes (Hospitalization)
  Sender: FDA-Public Use
  Company Number: CH-MYLANLABS-2019M1093216

PATIENT
  Age: 86 Year
  Sex: Female

DRUGS (4)
  1. LEPONEX [Suspect]
     Active Substance: CLOZAPINE
     Dosage: UNK
     Dates: start: 2019
  2. LEPONEX [Suspect]
     Active Substance: CLOZAPINE
     Dosage: UNK
     Dates: start: 2019
  3. LEPONEX [Suspect]
     Active Substance: CLOZAPINE
     Indication: PRODUCT USED FOR UNKNOWN INDICATION
     Dosage: 50MG-50MG-200MG-0RECENTE AUMENTO DEL DOSAGGIO SERALE CHE PRIMA ERA DI 150MG
     Route: 048
  4. LEPONEX [Suspect]
     Active Substance: CLOZAPINE
     Dosage: 50 MG-50 MG-200 MG
     Dates: start: 20190829

REACTIONS (6)
  - Confusional state [Recovered/Resolved]
  - Faecaloma [Unknown]
  - Disorientation [Unknown]
  - Abdominal pain [Unknown]
  - Psychomotor retardation [Unknown]
  - Delirium [Recovered/Resolved]

NARRATIVE: CASE EVENT DATE: 2019
